FAERS Safety Report 4395194-0 (Version None)
Quarter: 2004Q3

REPORT INFORMATION
  Report Type: 
  Country: None (occurrence: None)
  Receive Date: 20040706
  Receipt Date: 20040622
  Transmission Date: 20050211
  Serious: Yes (Hospitalization)
  Sender: FDA-Public Use
  Company Number: GBR-2004-0001103

PATIENT
  Age: 70 Year
  Sex: Male

DRUGS (1)
  1. OXY 5,10,20,40MG VS PLACEBO (OXY 5,10,20,40MG VS PLACEBO) CR TABLET [Suspect]
     Indication: PAIN
     Dates: start: 20040227, end: 20040525

REACTIONS (2)
  - CONSTIPATION [None]
  - INTESTINAL OBSTRUCTION [None]
